FAERS Safety Report 17336962 (Version 2)
Quarter: 2020Q1

REPORT INFORMATION
  Report Type: Spontaneous
  Country: US (occurrence: US)
  Receive Date: 20200128
  Receipt Date: 20200219
  Transmission Date: 20200409
  Serious: No
  Sender: FDA-Public Use
  Company Number: US-BIOGEN-2020BI00826461

PATIENT
  Age: 51 Year
  Sex: Female

DRUGS (1)
  1. TECFIDERA [Suspect]
     Active Substance: DIMETHYL FUMARATE
     Indication: MULTIPLE SCLEROSIS
     Route: 048
     Dates: start: 20191207

REACTIONS (4)
  - Back pain [Unknown]
  - Hot flush [Not Recovered/Not Resolved]
  - Bone pain [Unknown]
  - Ovarian disorder [Not Recovered/Not Resolved]

NARRATIVE: CASE EVENT DATE: 20200124
